FAERS Safety Report 24309406 (Version 6)
Quarter: 2025Q2

REPORT INFORMATION
  Report Type: Spontaneous
  Country: JP (occurrence: JP)
  Receive Date: 20240911
  Receipt Date: 20250401
  Transmission Date: 20250716
  Serious: Yes (Other)
  Sender: JOHNSON AND JOHNSON
  Company Number: JP-JNJFOC-20240917545

PATIENT
  Age: 80 Year
  Sex: Female

DRUGS (8)
  1. UPTRAVI [Suspect]
     Active Substance: SELEXIPAG
     Indication: Pulmonary hypertension
     Route: 048
  2. OPSUMIT [Suspect]
     Active Substance: MACITENTAN
     Indication: Pulmonary arterial hypertension
     Route: 048
     Dates: end: 20231207
  3. OPSUMIT [Suspect]
     Active Substance: MACITENTAN
     Indication: Pulmonary hypertension
  4. UNSPECIFIED INGREDIENT [Suspect]
     Active Substance: UNSPECIFIED INGREDIENT
  5. ADEMPAS [Suspect]
     Active Substance: RIOCIGUAT
     Indication: Pulmonary hypertension
     Route: 048
  6. OXYGEN [Concomitant]
     Active Substance: OXYGEN
     Indication: Cardiac failure
     Route: 055
  7. WARFARIN POTASSIUM [Concomitant]
     Active Substance: WARFARIN POTASSIUM
     Indication: Pulmonary hypertension
     Route: 048
  8. RIOCIGUAT [Concomitant]
     Active Substance: RIOCIGUAT
     Indication: Pulmonary hypertension
     Route: 048

REACTIONS (1)
  - Cardiac failure [Recovered/Resolved]
